FAERS Safety Report 23736526 (Version 1)
Quarter: 2024Q2

REPORT INFORMATION
  Report Type: Other
  Country: CN (occurrence: CN)
  Receive Date: 20240412
  Receipt Date: 20240412
  Transmission Date: 20240716
  Serious: Yes (Hospitalization, Other)
  Sender: FDA-Public Use
  Company Number: CN-GE HEALTHCARE-2024CSU003568

PATIENT
  Age: 64 Year
  Sex: Male

DRUGS (5)
  1. OMNIPAQUE [Suspect]
     Active Substance: IOHEXOL
     Indication: Angiocardiogram
     Dosage: 35 GM, TOTAL
     Route: 040
     Dates: start: 20240327, end: 20240327
  2. OMNIPAQUE [Suspect]
     Active Substance: IOHEXOL
     Indication: Coronary angioplasty
  3. OMNIPAQUE [Suspect]
     Active Substance: IOHEXOL
     Indication: Coronary arterial stent insertion
  4. OMNIPAQUE [Suspect]
     Active Substance: IOHEXOL
     Indication: Interventional procedure
  5. OMNIPAQUE [Suspect]
     Active Substance: IOHEXOL
     Indication: Vascular stent insertion

REACTIONS (4)
  - Dysuria [Recovering/Resolving]
  - Back pain [Recovering/Resolving]
  - Confusional state [Recovering/Resolving]
  - Chest discomfort [Recovering/Resolving]

NARRATIVE: CASE EVENT DATE: 20240327
